FAERS Safety Report 23497435 (Version 1)
Quarter: 2024Q1

REPORT INFORMATION
  Report Type: Spontaneous
  Country: US (occurrence: None)
  Receive Date: 20240207
  Receipt Date: 20240207
  Transmission Date: 20240410
  Serious: No
  Sender: FDA-Public Use
  Company Number: US-ROCHE-3378360

PATIENT
  Sex: Female

DRUGS (4)
  1. XOLAIR [Suspect]
     Active Substance: OMALIZUMAB
     Indication: Product used for unknown indication
     Route: 058
  2. XOLAIR [Suspect]
     Active Substance: OMALIZUMAB
  3. XOLAIR [Suspect]
     Active Substance: OMALIZUMAB
  4. FUROSEMIDE [Concomitant]
     Active Substance: FUROSEMIDE
     Dosage: INCREASE FUROSEMIDE TO 80MG TWICE DAILY. THEY NOW HAVE DECREASED HER TO 80MG AND 40MG ONCE DAILY.

REACTIONS (1)
  - Oedema [Recovering/Resolving]
